FAERS Safety Report 10959338 (Version 1)
Quarter: 2015Q1

REPORT INFORMATION
  Report Type: Spontaneous
  Country: US (occurrence: US)
  Receive Date: 20150327
  Receipt Date: 20150327
  Transmission Date: 20150721
  Serious: Yes (Death, Other)
  Sender: FDA-Public Use
  Company Number: US-CIPLA LTD.-2015US02291

PATIENT

DRUGS (12)
  1. ACETAMINOPHEN/HYDROCODONE [Suspect]
     Active Substance: ACETAMINOPHEN\HYDROCODONE
  2. LUBIPROSTONE [Suspect]
     Active Substance: LUBIPROSTONE
  3. ZOLPIDEM TARTARATE [Suspect]
     Active Substance: ZOLPIDEM TARTRATE
  4. LINACLOTIDE [Suspect]
     Active Substance: LINACLOTIDE
  5. LIOTHYRONINE [Suspect]
     Active Substance: LIOTHYRONINE
  6. GABAPENTIN. [Suspect]
     Active Substance: GABAPENTIN
  7. TRAMADOL [Suspect]
     Active Substance: TRAMADOL
  8. ONDANSETRON [Suspect]
     Active Substance: ONDANSETRON
  9. ESCITALOPRAM [Suspect]
     Active Substance: ESCITALOPRAM OXALATE
  10. SERTRALINE [Suspect]
     Active Substance: SERTRALINE HYDROCHLORIDE
  11. AMITRIPTYLINE [Suspect]
     Active Substance: AMITRIPTYLINE
  12. DICLOFENAC [Suspect]
     Active Substance: DICLOFENAC

REACTIONS (3)
  - Respiratory arrest [Unknown]
  - Cardiac arrest [Unknown]
  - Completed suicide [Fatal]
